FAERS Safety Report 5945298-3 (Version None)
Quarter: 2008Q4

REPORT INFORMATION
  Report Type: 
  Country: None (occurrence: None)
  Receive Date: 20081107
  Receipt Date: 20081028
  Transmission Date: 20090506
  Serious: Yes (Hospitalization)
  Sender: FDA-Public Use
  Company Number: NL-ROCHE-594401

PATIENT
  Sex: Female

DRUGS (1)
  1. LARIAM [Suspect]
     Indication: DRUG USE FOR UNKNOWN INDICATION
     Route: 048
     Dates: start: 20080304, end: 20080401

REACTIONS (4)
  - DIZZINESS [None]
  - FATIGUE [None]
  - PSYCHOTIC DISORDER [None]
  - TONGUE DISORDER [None]
